FAERS Safety Report 5344547-2 (Version None)
Quarter: 2007Q2

REPORT INFORMATION
  Report Type: 
  Country: None (occurrence: None)
  Receive Date: 20070604
  Receipt Date: 20070525
  Transmission Date: 20071010
  Serious: Yes (Other)
  Sender: FDA-Public Use
  Company Number: JP-PFIZER INC-2007042761

PATIENT

DRUGS (2)
  1. LIPITOR [Suspect]
     Route: 048
  2. PROGRAF [Suspect]
     Route: 048

REACTIONS (3)
  - DELIRIUM [None]
  - DEMENTIA [None]
  - DEPRESSED LEVEL OF CONSCIOUSNESS [None]
